FAERS Safety Report 22586997 (Version 2)
Quarter: 2023Q2

REPORT INFORMATION
  Report Type: Spontaneous
  Country: FR (occurrence: FR)
  Receive Date: 20230612
  Receipt Date: 20230630
  Transmission Date: 20230722
  Serious: Yes (Life-Threatening, Hospitalization, Other)
  Sender: FDA-Public Use
  Company Number: FR-CELLTRION INC.-2023FR011822

PATIENT

DRUGS (14)
  1. RITUXIMAB [Suspect]
     Active Substance: RITUXIMAB
     Indication: Warm autoimmune haemolytic anaemia
     Dosage: 1000 MG ON DAY 1
  2. RITUXIMAB [Suspect]
     Active Substance: RITUXIMAB
     Indication: Marginal zone lymphoma
     Dosage: 1000 MG ON DAY 15
  3. RITUXIMAB [Suspect]
     Active Substance: RITUXIMAB
     Dosage: ONE 500 MG INFUSION (SECOND COURSE OF RTX (FOUR INFUSIONS OF 375MG/M2/WEEK FOR FOUR WEEKS)
  4. RITUXIMAB [Suspect]
     Active Substance: RITUXIMAB
     Dosage: FOUR INFUSIONS FOR FOUR WEEKS
     Route: 042
  5. RITUXIMAB [Suspect]
     Active Substance: RITUXIMAB
     Dosage: ON DAY 1 AND DAY 15
     Route: 042
  6. PREDNISONE [Suspect]
     Active Substance: PREDNISONE
     Indication: Warm autoimmune haemolytic anaemia
     Dosage: TAPERED TO 5 MG/DAY OVER SIX MONTHS AND STOPPED AFTER EIGHT MONTHS
     Route: 048
  7. PREDNISONE [Suspect]
     Active Substance: PREDNISONE
     Indication: Marginal zone lymphoma
     Dosage: DUE TO THE FIRST RELAPSE, SHE RECEIVED PREDNISONE 1 MG/KG/DAY ASSOCIATED WITH RTX
  8. PREDNISONE [Suspect]
     Active Substance: PREDNISONE
     Dosage: 1 MG/KG/DAY (ONE YEAR LATER, WAIHA RELAPSED AND PATIENT RECEIVED PREDNISONE 1MG/KG/DAY)
  9. METFORMIN [Concomitant]
     Active Substance: METFORMIN HYDROCHLORIDE
     Indication: Type 2 diabetes mellitus
  10. GLICLAZIDE [Concomitant]
     Active Substance: GLICLAZIDE
     Indication: Type 2 diabetes mellitus
  11. VILDAGLIPTIN [Concomitant]
     Active Substance: VILDAGLIPTIN
     Indication: Type 2 diabetes mellitus
  12. METHYLPREDNISOLONE [Concomitant]
     Active Substance: METHYLPREDNISOLONE
     Indication: Premedication
     Dosage: 60 MG
  13. METHYLPREDNISOLONE [Concomitant]
     Active Substance: METHYLPREDNISOLONE
     Dosage: 1 MG/KG/DAY AND TAPERED OVER ONE WEEK
  14. DEXCHLORPHENIRAMINE [Concomitant]
     Active Substance: DEXCHLORPHENIRAMINE
     Indication: Premedication
     Dosage: 5 MG

REACTIONS (5)
  - Serum sickness [Recovered/Resolved]
  - Anaphylactic reaction [Recovered/Resolved]
  - Body temperature increased [Unknown]
  - Chills [Unknown]
  - Intentional product use issue [Unknown]
